FAERS Safety Report 9209436 (Version 1)
Quarter: 2013Q1

REPORT INFORMATION
  Report Type: Spontaneous
  Country: US (occurrence: None)
  Receive Date: 20120727
  Receipt Date: 20120727
  Transmission Date: 20140127
  Serious: Yes (Hospitalization)
  Sender: FDA-Public Use
  Company Number: US-JNJFOC-20120314197

PATIENT
  Age: 77 Year
  Sex: Female
  Weight: 52.62 kg

DRUGS (2)
  1. IMODIUM A-D [Suspect]
     Indication: CROHN^S DISEASE
     Dosage: IN 1 DAY
     Route: 048
     Dates: start: 1990
  2. PENTASA [Suspect]
     Indication: CROHN^S DISEASE
     Dates: start: 2004

REACTIONS (1)
  - Dizziness [None]
